FAERS Safety Report 22227048 (Version 6)
Quarter: 2023Q2

REPORT INFORMATION
  Report Type: Spontaneous
  Country: PL (occurrence: None)
  Receive Date: 20230419
  Receipt Date: 20230606
  Transmission Date: 20230722
  Serious: Yes (Other)
  Sender: FDA-Public Use
  Company Number: PL-ROCHE-3332903

PATIENT
  Age: 38 Year
  Sex: Male

DRUGS (2)
  1. MABTHERA [Suspect]
     Active Substance: RITUXIMAB
     Indication: Myasthenia gravis
     Route: 065
  2. CYCLOPHOSPHAMIDE [Suspect]
     Active Substance: CYCLOPHOSPHAMIDE
     Indication: Myasthenia gravis
     Route: 065

REACTIONS (9)
  - Eosinophilic granulomatosis with polyangiitis [Unknown]
  - Choking [Unknown]
  - Incorrect dose administered [Unknown]
  - Fatigue [Unknown]
  - Respiratory disorder [Unknown]
  - Negative thoughts [Unknown]
  - Depression [Unknown]
  - Crying [Unknown]
  - Asthenia [Unknown]
